FAERS Safety Report 16057062 (Version 1)
Quarter: 2019Q1

REPORT INFORMATION
  Report Type: Spontaneous
  Country: US (occurrence: US)
  Receive Date: 20190207
  Receipt Date: 20190207
  Transmission Date: 20190418
  Serious: No
  Sender: FDA-Public Use
  Company Number: None

PATIENT
  Sex: Female

DRUGS (1)
  1. IMATINIB MESYLATE 400MG [Suspect]
     Active Substance: IMATINIB MESYLATE
     Route: 048
     Dates: start: 20180410

REACTIONS (1)
  - Amnesia [None]
